FAERS Safety Report 7861750-8 (Version None)
Quarter: 2011Q4

REPORT INFORMATION
  Report Type: 
  Country: None (occurrence: None)
  Receive Date: 20111027
  Receipt Date: 20111017
  Transmission Date: 20120403
  Serious: Yes (Other)
  Sender: FDA-Public Use
  Company Number: JP-ROCHE-688248

PATIENT
  Sex: Female
  Weight: 66 kg

DRUGS (11)
  1. SIMVASTATIN [Concomitant]
     Dosage: DOSAGE IS UNCERTAIN.
     Route: 048
     Dates: start: 20100806
  2. ACTEMRA [Suspect]
     Route: 041
     Dates: start: 20100615, end: 20110617
  3. ISONIAZID [Concomitant]
     Dates: end: 20100209
  4. CELECOXIB [Concomitant]
     Route: 048
     Dates: end: 20110501
  5. ACTEMRA [Suspect]
     Indication: RHEUMATOID ARTHRITIS
     Route: 041
     Dates: start: 20100112, end: 20100112
  6. CELECOXIB [Concomitant]
     Dosage: DOSAGE IS UNCERTAIN.
     Route: 048
     Dates: end: 20100501
  7. ADEFURONIC [Concomitant]
     Dosage: DOSAGE IS UNCERTAIN.
     Dates: start: 20100518
  8. CRESTOR [Concomitant]
     Route: 048
     Dates: start: 20100518, end: 20100615
  9. ACTEMRA [Suspect]
     Route: 041
     Dates: start: 20100223, end: 20100223
  10. ACTEMRA [Suspect]
     Route: 041
     Dates: start: 20100323, end: 20100518
  11. CELECOXIB [Concomitant]
     Route: 048
     Dates: start: 20110520

REACTIONS (5)
  - C-REACTIVE PROTEIN INCREASED [None]
  - HEPATIC FUNCTION ABNORMAL [None]
  - PRURITUS [None]
  - HEPATIC STEATOSIS [None]
  - CHOLELITHIASIS [None]
